FAERS Safety Report 23126396 (Version 1)
Quarter: 2023Q4

REPORT INFORMATION
  Report Type: Report from Study
  Country: ES (occurrence: ES)
  Receive Date: 20231030
  Receipt Date: 20231030
  Transmission Date: 20240110
  Serious: Yes (Death)
  Sender: FDA-Public Use
  Company Number: None

PATIENT
  Age: 86 Year
  Sex: Male

DRUGS (6)
  1. PAROXETINE [Interacting]
     Active Substance: PAROXETINE
     Indication: Depression
     Dosage: 60 MILLIGRAM, QD
     Route: 048
     Dates: start: 201401, end: 20230630
  2. ELIQUIS [Interacting]
     Active Substance: APIXABAN
     Indication: Atrial fibrillation
     Dosage: 5 MILLIGRAM, QD
     Route: 048
     Dates: start: 201910, end: 20230630
  3. AMIODARONE HYDROCHLORIDE [Interacting]
     Active Substance: AMIODARONE HYDROCHLORIDE
     Indication: Atrial fibrillation
     Dosage: 200 MILLIGRAM, QD
     Route: 048
     Dates: start: 201910, end: 20230630
  4. DUTASTERIDE\TAMSULOSIN [Concomitant]
     Active Substance: DUTASTERIDE\TAMSULOSIN
     Indication: Benign prostatic hyperplasia
     Dosage: 1 DOSAGE FORM, QD
     Route: 048
     Dates: start: 201503, end: 20230630
  5. AMLODIPINE BESYLATE [Concomitant]
     Active Substance: AMLODIPINE BESYLATE
     Indication: Hypertension
     Dosage: 10 MILLIGRAM, QD
     Route: 048
     Dates: start: 201604, end: 20230630
  6. GLICLAZIDE [Concomitant]
     Active Substance: GLICLAZIDE
     Indication: Type 2 diabetes mellitus
     Dosage: 120 MILLIGRAM, QD
     Route: 048
     Dates: start: 202010, end: 20230630

REACTIONS (2)
  - Haemorrhage intracranial [Fatal]
  - Drug interaction [Unknown]

NARRATIVE: CASE EVENT DATE: 20230630
